FAERS Safety Report 4709832-3 (Version None)
Quarter: 2005Q3

REPORT INFORMATION
  Report Type: 
  Country: None (occurrence: None)
  Receive Date: 20050708
  Receipt Date: 20050627
  Transmission Date: 20060218
  Serious: Yes (Hospitalization)
  Sender: FDA-Public Use
  Company Number: US-AMGEN-US140272

PATIENT
  Age: 40 Year
  Sex: Female

DRUGS (2)
  1. ENBREL [Suspect]
     Indication: RHEUMATOID ARTHRITIS
     Dates: start: 20030101
  2. TYLENOL PM [Suspect]
     Dates: start: 20050312

REACTIONS (5)
  - COMA [None]
  - DEPRESSION [None]
  - DRUG TOXICITY [None]
  - OVERDOSE [None]
  - RESPIRATORY DISORDER [None]
